FAERS Safety Report 5961312-3 (Version None)
Quarter: 2008Q4

REPORT INFORMATION
  Report Type: 
  Country: None (occurrence: None)
  Receive Date: 20081121
  Receipt Date: 20081112
  Transmission Date: 20090506
  Serious: Yes (Hospitalization)
  Sender: FDA-Public Use
  Company Number: US-AMGEN-QUU318787

PATIENT
  Sex: Female

DRUGS (1)
  1. ENBREL [Suspect]
     Indication: RHEUMATOID ARTHRITIS
     Route: 058

REACTIONS (10)
  - ANAEMIA [None]
  - CHEST PAIN [None]
  - DYSPNOEA [None]
  - HEPATIC NEOPLASM [None]
  - HISTOPLASMOSIS [None]
  - LUNG NEOPLASM [None]
  - PLATELET COUNT DECREASED [None]
  - PYREXIA [None]
  - RESPIRATORY ARREST [None]
  - SPLEEN DISORDER [None]
